FAERS Safety Report 23383373 (Version 1)
Quarter: 2024Q1

REPORT INFORMATION
  Report Type: Spontaneous
  Country: CN (occurrence: CN)
  Receive Date: 20240109
  Receipt Date: 20240109
  Transmission Date: 20240409
  Serious: Yes (Hospitalization)
  Sender: FDA-Public Use
  Company Number: CN-FERRINGPH-2023FE06502

PATIENT

DRUGS (1)
  1. MENOPUR [Suspect]
     Active Substance: FOLLITROPIN\LUTEINIZING HORMONE
     Indication: Infertility female
     Dosage: 75 INTERNATIONAL UNIT, 1 TIME DAILY
     Route: 058
     Dates: start: 20230327, end: 20230331

REACTIONS (3)
  - Oliguria [Unknown]
  - Vomiting [Recovering/Resolving]
  - Abdominal distension [Recovering/Resolving]

NARRATIVE: CASE EVENT DATE: 20230404
